FAERS Safety Report 9222964 (Version 1)
Quarter: 2013Q2

REPORT INFORMATION
  Report Type: Spontaneous
  Country: US (occurrence: US)
  Receive Date: 20130410
  Receipt Date: 20130410
  Transmission Date: 20140414
  Serious: Yes (Hospitalization)
  Sender: FDA-Public Use
  Company Number: US-BAYER-2013-043871

PATIENT
  Age: 36 Year
  Sex: Female
  Weight: 54.88 kg

DRUGS (8)
  1. YAZ [Suspect]
  2. YASMIN [Suspect]
  3. SYNTHROID [Concomitant]
     Indication: HYPOTHYROIDISM
     Dosage: 75 MG, UNK
     Route: 048
  4. RANITIDINE HYDROCHLORIDE [Concomitant]
     Indication: GASTROOESOPHAGEAL REFLUX DISEASE
     Dosage: UNK UNK, BID
     Route: 048
  5. FROVA [Concomitant]
     Indication: MIGRAINE
     Dosage: 2.5 MG, UNK
     Route: 048
  6. WELLBUTRIN [Concomitant]
     Indication: DEPRESSION
     Dosage: 150 MG, UNK
     Route: 048
  7. MAXALT [Concomitant]
     Indication: MIGRAINE
     Dosage: 5 MG, PRN
  8. TYLENOL [Concomitant]

REACTIONS (1)
  - Cerebrovascular accident [None]
